FAERS Safety Report 11424913 (Version 1)
Quarter: 2015Q3

REPORT INFORMATION
  Report Type: Spontaneous
  Country: US (occurrence: US)
  Receive Date: 20150821
  Receipt Date: 20150821
  Transmission Date: 20151125
  Serious: No
  Sender: FDA-Public Use
  Company Number: US-ELI_LILLY_AND_COMPANY-US201301002325

PATIENT
  Sex: Male

DRUGS (3)
  1. HUMULIN N [Suspect]
     Active Substance: INSULIN HUMAN
     Indication: BLOOD GLUCOSE FLUCTUATION
     Dosage: 40 U, TID
  2. HUMULIN N [Suspect]
     Active Substance: INSULIN HUMAN
     Dosage: 40 U, TID
  3. NOVOLOG [Concomitant]
     Active Substance: INSULIN ASPART
     Dosage: 40 U, TID

REACTIONS (4)
  - Visual impairment [Unknown]
  - Hypoaesthesia [Not Recovered/Not Resolved]
  - Blindness [Unknown]
  - Blood glucose abnormal [Unknown]
